FAERS Safety Report 5042633-8 (Version None)
Quarter: 2006Q2

REPORT INFORMATION
  Report Type: 
  Country: None (occurrence: None)
  Receive Date: 20060627
  Receipt Date: 20060613
  Transmission Date: 20061013
  Serious: Yes (Hospitalization, Other)
  Sender: FDA-Public Use
  Company Number: 2006-00447

PATIENT
  Age: 51 Year
  Sex: Male
  Weight: 68 kg

DRUGS (3)
  1. VELCADE [Suspect]
     Indication: MULTIPLE MYELOMA
     Dosage: 1.30 MG/M2, INTRAVENOUS
     Route: 042
     Dates: start: 20051024, end: 20060209
  2. DEXAMETHASONE [Suspect]
     Indication: MULTIPLE MYELOMA
     Dosage: 40.00 MG, QD, ORAL
     Route: 048
     Dates: start: 20051114, end: 20060223
  3. ACETAMINOPHEN [Concomitant]

REACTIONS (4)
  - AGITATION [None]
  - DEAFNESS [None]
  - HAEMOGLOBIN INCREASED [None]
  - MENINGITIS MENINGOCOCCAL [None]
